FAERS Safety Report 4932813-1 (Version None)
Quarter: 2006Q1

REPORT INFORMATION
  Report Type: 
  Country: None (occurrence: None)
  Receive Date: 20060302
  Receipt Date: 20060302
  Transmission Date: 20060701
  Serious: Yes (Death)
  Sender: FDA-Public Use
  Company Number: None

PATIENT
  Sex: Female
  Weight: 49.8957 kg

DRUGS (1)
  1. IMITREX [Suspect]
     Indication: HEADACHE
     Dosage: 50 MG EVERY 4 HOURS
     Dates: start: 20050917

REACTIONS (1)
  - DEATH [None]
